FAERS Safety Report 16995907 (Version 1)
Quarter: 2019Q4

REPORT INFORMATION
  Report Type: Spontaneous
  Country: CA (occurrence: CA)
  Receive Date: 20191105
  Receipt Date: 20191105
  Transmission Date: 20200122
  Serious: Yes (Other)
  Sender: FDA-Public Use
  Company Number: CA-TAKEDA-2019TUS061313

PATIENT
  Age: 59 Year
  Sex: Female

DRUGS (1)
  1. BRIGATINIB [Suspect]
     Active Substance: BRIGATINIB
     Indication: METASTATIC NEOPLASM
     Dosage: UNK
     Route: 065

REACTIONS (1)
  - Neuroendocrine carcinoma [Unknown]
